FAERS Safety Report 6931293-4 (Version None)
Quarter: 2010Q3

REPORT INFORMATION
  Report Type: 
  Country: None (occurrence: None)
  Receive Date: 20100816
  Receipt Date: 20100729
  Transmission Date: 20110219
  Serious: Yes (Other)
  Sender: FDA-Public Use
  Company Number: 2010-2795

PATIENT
  Age: 67 Year
  Sex: Male

DRUGS (1)
  1. APO-GO AMPOULES (APO-GO) (APOMORPHINE HYDROCHLORIDE)(APOMORPHINE HYDRO [Suspect]
     Indication: PRODUCT USED FOR UNKNOWN INDICATION
     Dosage: (CONTINUOUS  FROM 08:30 TILL 19:30), SUBCUTANEOUS
     Route: 058
     Dates: start: 20080804

REACTIONS (3)
  - DEMENTIA [None]
  - PSYCHOTIC DISORDER [None]
  - URINARY INCONTINENCE [None]
